FAERS Safety Report 9221486 (Version 1)
Quarter: 2013Q1

REPORT INFORMATION
  Report Type: Spontaneous
  Country: US (occurrence: None)
  Receive Date: 20120907
  Receipt Date: 20120907
  Transmission Date: 20140127
  Serious: Yes (Other)
  Sender: FDA-Public Use
  Company Number: AUR-APL-2012-03355

PATIENT
  Age: 53 Year
  Sex: Male

DRUGS (2)
  1. AMPICILLIN (AMPICILLIN) [Suspect]
     Indication: PRODUCT USED FOR UNKNOWN INDICATION
  2. PENICILLIN [Suspect]
     Indication: PRODUCT USED FOR UNKNOWN INDICATION

REACTIONS (2)
  - Anaphylactic reaction [None]
  - Drug hypersensitivity [None]
